FAERS Safety Report 8780326 (Version 1)
Quarter: 2012Q4

REPORT INFORMATION
  Report Type: Spontaneous
  Country: US (occurrence: None)
  Receive Date: 20120905
  Receipt Date: 20120905
  Transmission Date: 20130627
  Serious: Yes (Hospitalization)
  Sender: FDA-Public Use
  Company Number: None

PATIENT
  Age: 94 Year
  Sex: Female
  Weight: 55 kg

DRUGS (1)
  1. PRADAXA 150MG BOEHRINGER INGLEHEIM [Suspect]
     Indication: ATRIAL FIBRILLATION
     Route: 048

REACTIONS (8)
  - Fall [None]
  - Headache [None]
  - Pain [None]
  - Movement disorder [None]
  - Subarachnoid haemorrhage [None]
  - Spinal fracture [None]
  - Lethargy [None]
  - Incorrect storage of drug [None]
